FAERS Safety Report 6991496-X (Version None)
Quarter: 2010Q3

REPORT INFORMATION
  Report Type: 
  Country: None (occurrence: None)
  Receive Date: 20100917
  Receipt Date: 20100909
  Transmission Date: 20110219
  Serious: Yes (Hospitalization, Other)
  Sender: FDA-Public Use
  Company Number: US-ELI_LILLY_AND_COMPANY-US201009002576

PATIENT
  Sex: Male
  Weight: 151.47 kg

DRUGS (15)
  1. PEMETREXED [Suspect]
     Indication: NON-SMALL CELL LUNG CANCER
     Dosage: 500 MG/M2, ON DAY 1 EVERY 21 DAYS
     Route: 042
  2. BEVACIZUMAB [Suspect]
     Indication: NON-SMALL CELL LUNG CANCER
     Dosage: 15 MG/KG, ON DAY 1 EVERY 21 DAYS
     Route: 042
  3. CARBOPLATIN [Suspect]
     Indication: NON-SMALL CELL LUNG CANCER
  4. ZYPREXA [Concomitant]
     Indication: DEPRESSION
     Dates: start: 20090101
  5. METFORMIN [Concomitant]
     Indication: DIABETES MELLITUS
     Dates: start: 20060101
  6. OXYCODONE WITH APAP [Concomitant]
     Indication: BACK PAIN
     Dates: start: 19960101
  7. TRAZODIL [Concomitant]
     Indication: INSOMNIA
     Dates: start: 20020101
  8. CARVEDILOL [Concomitant]
     Indication: HYPERTENSION
     Dates: start: 20020101
  9. FUROSEMIDE [Concomitant]
     Indication: CHRONIC OBSTRUCTIVE PULMONARY DISEASE
     Dates: start: 20000101
  10. METOCLOPRAMIDE [Concomitant]
     Indication: IMPAIRED GASTRIC EMPTYING
     Dates: start: 20060101
  11. DIOVAN [Concomitant]
     Indication: HYPERTENSION
     Dates: start: 20000101
  12. LORASTINE [Concomitant]
     Indication: HYPERCHOLESTEROLAEMIA
     Dates: start: 20000101
  13. OMEPRAZOLE [Concomitant]
     Indication: GASTROOESOPHAGEAL REFLUX DISEASE
     Dates: start: 20000101
  14. LOMOTIL /00034001/ [Concomitant]
     Indication: DIARRHOEA
  15. IMODIUM [Concomitant]
     Indication: DIARRHOEA

REACTIONS (2)
  - DEHYDRATION [None]
  - DYSPNOEA [None]
